FAERS Safety Report 8166757-1 (Version None)
Quarter: 2012Q1

REPORT INFORMATION
  Report Type: 
  Country: None (occurrence: None)
  Receive Date: 20120227
  Receipt Date: 20120215
  Transmission Date: 20120608
  Serious: Yes (Other)
  Sender: FDA-Public Use
  Company Number: ES-MILLENNIUM PHARMACEUTICALS, INC.-2012-00942

PATIENT

DRUGS (8)
  1. PREDNISONE [Concomitant]
     Indication: MULTIPLE MYELOMA
  2. FENTANYL [Concomitant]
     Dosage: 50 UNK, UNK
  3. VELCADE [Suspect]
     Indication: MULTIPLE MYELOMA
     Dosage: 2.42 MG, UNK
     Route: 065
     Dates: start: 20120101, end: 20120130
  4. ALLOPURINOL [Concomitant]
  5. ACYCLOVIR [Concomitant]
  6. MELPHALAN [Concomitant]
     Indication: MULTIPLE MYELOMA
  7. OMEPRAZOLE [Concomitant]
  8. AMLODIPINE [Concomitant]

REACTIONS (3)
  - ATRIAL FIBRILLATION [None]
  - SUPRAVENTRICULAR TACHYCARDIA [None]
  - SYNCOPE [None]
